FAERS Safety Report 22526888 (Version 2)
Quarter: 2023Q2

REPORT INFORMATION
  Report Type: Spontaneous
  Country: US (occurrence: US)
  Receive Date: 20230606
  Receipt Date: 20230616
  Transmission Date: 20230721
  Serious: No
  Sender: FDA-Public Use
  Company Number: US-BRISTOL-MYERS SQUIBB COMPANY-2023-079713

PATIENT
  Age: 72 Year
  Sex: Female
  Weight: 51.26 kg

DRUGS (2)
  1. REVLIMID [Suspect]
     Active Substance: LENALIDOMIDE
     Indication: Myelofibrosis
     Dosage: 3WKSON,1WKOFF
     Route: 048
     Dates: start: 20230602
  2. REVLIMID [Suspect]
     Active Substance: LENALIDOMIDE
     Dosage: 21D OF 28DAYS
     Route: 048
     Dates: start: 20230601

REACTIONS (6)
  - Pruritus [Not Recovered/Not Resolved]
  - Off label use [Unknown]
  - Pyrexia [Not Recovered/Not Resolved]
  - Confusional state [Not Recovered/Not Resolved]
  - Fatigue [Not Recovered/Not Resolved]
  - Somnolence [Not Recovered/Not Resolved]
